FAERS Safety Report 7137323-1 (Version None)
Quarter: 2010Q4

REPORT INFORMATION
  Report Type: 
  Country: None (occurrence: None)
  Receive Date: 20101206
  Receipt Date: 20101123
  Transmission Date: 20110411
  Serious: Yes (Hospitalization)
  Sender: FDA-Public Use
  Company Number: PHHY2010MX80567

PATIENT
  Age: 85 Year
  Sex: Male

DRUGS (1)
  1. DIOVAN [Suspect]
     Indication: HYPERTENSION
     Dosage: 160 MG, ONE TABLET, DAILY
     Route: 048
     Dates: start: 20051101

REACTIONS (3)
  - ANAEMIA [None]
  - PNEUMONIA [None]
  - ULCER [None]
